FAERS Safety Report 9720007 (Version 2)
Quarter: 2013Q4

REPORT INFORMATION
  Report Type: Spontaneous
  Country: DE (occurrence: DE)
  Receive Date: 20131128
  Receipt Date: 20131128
  Transmission Date: 20140711
  Serious: Yes (Hospitalization, Other)
  Sender: FDA-Public Use
  Company Number: DE-JNJFOC-20131110655

PATIENT
  Age: 76 Year
  Sex: Male
  Weight: 81.18 kg

DRUGS (4)
  1. XARELTO [Suspect]
     Indication: CEREBROVASCULAR ACCIDENT PROPHYLAXIS
     Route: 048
     Dates: start: 20130927
  2. XARELTO [Suspect]
     Indication: ATRIAL FIBRILLATION
     Route: 048
     Dates: start: 20130927
  3. ASS [Interacting]
     Indication: PERIPHERAL ARTERIAL OCCLUSIVE DISEASE
     Route: 065
  4. ASS [Interacting]
     Indication: CORONARY ARTERY DISEASE
     Route: 065

REACTIONS (3)
  - Vitreous haemorrhage [Unknown]
  - Cardiac failure [Unknown]
  - Drug interaction [Unknown]
